FAERS Safety Report 7750233-1 (Version None)
Quarter: 2011Q3

REPORT INFORMATION
  Report Type: 
  Country: None (occurrence: None)
  Receive Date: 20110914
  Receipt Date: 20110908
  Transmission Date: 20111222
  Serious: Yes (Life-Threatening, Hospitalization)
  Sender: FDA-Public Use
  Company Number: US-ROCHE-801571

PATIENT
  Sex: Female

DRUGS (1)
  1. VEMURAFENIB [Suspect]
     Dosage: LAST DOSE PRIOR TO SAE : 7 SEPTEMBER 2011 THERAPY HELD
     Route: 048
     Dates: start: 20110817

REACTIONS (1)
  - RESPIRATORY FAILURE [None]
